FAERS Safety Report 25732847 (Version 1)
Quarter: 2025Q3

REPORT INFORMATION
  Report Type: Spontaneous
  Country: CN (occurrence: CN)
  Receive Date: 20250828
  Receipt Date: 20250828
  Transmission Date: 20251020
  Serious: Yes (Hospitalization, Other)
  Sender: BAXTER
  Company Number: None

PATIENT
  Age: 51 Year
  Sex: Female
  Weight: 50 kg

DRUGS (4)
  1. CYCLOPHOSPHAMIDE [Suspect]
     Active Substance: CYCLOPHOSPHAMIDE
     Indication: Breast cancer recurrent
     Dosage: 0.85 G, QD
     Route: 041
     Dates: start: 20250625, end: 20250625
  2. SODIUM CHLORIDE [Suspect]
     Active Substance: SODIUM CHLORIDE
     Dosage: 250 ML, QD, 0.9% NORMAL SALINE (WITH DOCETAXEL)
     Route: 041
     Dates: start: 20250625, end: 20250625
  3. SODIUM CHLORIDE [Suspect]
     Active Substance: SODIUM CHLORIDE
     Dosage: 500 ML, QD, 0.9% NORMAL SALINE (WITH CYCLOPHOSPHAMIDE)
     Route: 041
     Dates: start: 20250625, end: 20250625
  4. DOCETAXEL [Suspect]
     Active Substance: DOCETAXEL
     Indication: Breast cancer recurrent
     Dosage: 105 MG, QD
     Route: 041
     Dates: start: 20250625, end: 20250625

REACTIONS (1)
  - Myelosuppression [Recovered/Resolved]

NARRATIVE: CASE EVENT DATE: 20250703
